FAERS Safety Report 4393737-4 (Version None)
Quarter: 2004Q3

REPORT INFORMATION
  Report Type: 
  Country: None (occurrence: None)
  Receive Date: 20040709
  Receipt Date: 20040628
  Transmission Date: 20050211
  Serious: Yes (Other)
  Sender: FDA-Public Use
  Company Number: 2002-05-0465

PATIENT
  Sex: Female

DRUGS (6)
  1. PAROXETINE HCL [Suspect]
     Route: 048
  2. CIMETIDINE [Suspect]
     Route: 065
  3. METRONIDAZOLE [Suspect]
     Route: 065
  4. LORATADINE [Suspect]
     Route: 048
  5. ALCOHOL [Suspect]
  6. ACETAMINOPHEN [Concomitant]
     Route: 065

REACTIONS (2)
  - ABORTION SPONTANEOUS [None]
  - OVERDOSE [None]
